FAERS Safety Report 11927192 (Version 4)
Quarter: 2016Q4

REPORT INFORMATION
  Report Type: Spontaneous
  Country: JP (occurrence: JP)
  Receive Date: 20160119
  Receipt Date: 20161010
  Transmission Date: 20170206
  Serious: Yes (Other)
  Sender: FDA-Public Use
  Company Number: JP-PFIZER INC-2015392266

PATIENT
  Age: 74 Year
  Sex: Female
  Weight: 72 kg

DRUGS (5)
  1. SUTENT [Suspect]
     Active Substance: SUNITINIB MALATE
     Indication: GASTROINTESTINAL STROMAL TUMOUR
     Dosage: 37.5 MG, DAILY
     Route: 048
     Dates: start: 20151105, end: 20151126
  2. SUTENT [Interacting]
     Active Substance: SUNITINIB MALATE
     Dosage: 25 MG, DAILY
     Route: 048
     Dates: start: 20151203, end: 20151210
  3. SUTENT [Interacting]
     Active Substance: SUNITINIB MALATE
     Dosage: 12.5 MG, DAILY
     Route: 048
     Dates: start: 20151217
  4. SUTENT [Interacting]
     Active Substance: SUNITINIB MALATE
     Dosage: 12.5 MG, CYCLIC (2-WEEK TREATMENT AND 1-WEEK INTERRUPTION)
     Route: 048
  5. WARFARIN [Interacting]
     Active Substance: WARFARIN
     Dosage: UNK

REACTIONS (7)
  - Drug interaction [Unknown]
  - Haemarthrosis [Unknown]
  - Hypertension [Recovered/Resolved]
  - Oedema [Recovering/Resolving]
  - Eye haemorrhage [Recovered/Resolved]
  - White blood cell count decreased [Recovered/Resolved]
  - Vision blurred [Unknown]

NARRATIVE: CASE EVENT DATE: 20151112
